FAERS Safety Report 8915395 (Version 1)
Quarter: 2012Q4

REPORT INFORMATION
  Report Type: 
  Country: SE (occurrence: SE)
  Receive Date: 20121119
  Receipt Date: 20121119
  Transmission Date: 20130627
  Serious: Yes (Hospitalization)
  Sender: FDA-Public Use
  Company Number: SE-PFIZER INC-2012283072

PATIENT
  Age: 45 Year
  Sex: Female
  Weight: 72 kg

DRUGS (7)
  1. GENOTROPIN [Suspect]
     Indication: GROWTH HORMONE DEFICIENCY
     Dosage: 0.5 mg, 1x/day,7 injections/week
     Route: 058
     Dates: start: 20050126
  2. LEVOTHYROXINE [Concomitant]
     Indication: TSH DECREASED
     Dosage: UNK
     Dates: start: 19931115
  3. LEVOTHYROXINE [Concomitant]
     Indication: PRIMARY HYPOTHYROIDISM
  4. ESTROGEN NOS [Concomitant]
     Indication: LUTEINISING HORMONE DEFICIENCY
     Dosage: UNK
     Dates: start: 19931116
  5. ESTROGEN NOS [Concomitant]
     Indication: LUTEINISING HORMONE DEFICIENCY
  6. ESTROGEN NOS [Concomitant]
     Indication: HYPOGONADISM FEMALE
  7. SERUM GONADOTROPHIN [Concomitant]
     Indication: NORMAL PREGNANCY
     Dosage: UNK
     Dates: start: 19990303

REACTIONS (2)
  - Breast disorder female [Unknown]
  - Gastric disorder [Unknown]
